FAERS Safety Report 17793674 (Version 1)
Quarter: 2020Q2

REPORT INFORMATION
  Report Type: Report from Study
  Country: FI (occurrence: FI)
  Receive Date: 20200515
  Receipt Date: 20200515
  Transmission Date: 20200714
  Serious: Yes (Hospitalization, Other)
  Sender: FDA-Public Use
  Company Number: FI-MYLANLABS-2019M1048170

PATIENT
  Age: 20 Year
  Sex: Male

DRUGS (23)
  1. TARGINIQ ER [Concomitant]
     Active Substance: NALOXONE HYDROCHLORIDE\OXYCODONE HYDROCHLORIDE
     Dosage: 5 MG/2.5 MG ONCE PER DAY
  2. LEPONEX [Suspect]
     Active Substance: CLOZAPINE
     Dosage: UPTO 400 MG PER DAY
     Dates: start: 2018
  3. LEPONEX [Suspect]
     Active Substance: CLOZAPINE
     Dosage: UPTO 500 PER DAY
     Dates: end: 201905
  4. LEPONEX [Suspect]
     Active Substance: CLOZAPINE
     Dosage: UPTO 300 MG PER DAY
     Dates: start: 20200403
  5. LEPONEX [Suspect]
     Active Substance: CLOZAPINE
     Dosage: HALVED DOSE,250 MG PER DAY
     Dates: start: 201905, end: 2020
  6. LEPONEX [Suspect]
     Active Substance: CLOZAPINE
     Dosage: UNK
     Dates: start: 202003, end: 20200328
  7. LEPONEX [Suspect]
     Active Substance: CLOZAPINE
     Dosage: 150 MILLIGRAM, QD
     Dates: start: 20200506
  8. VALPROATE [Concomitant]
     Active Substance: VALPROIC ACID
     Indication: PRODUCT USED FOR UNKNOWN INDICATION
     Dosage: UNK
     Dates: start: 201904
  9. DEPRAKINE                          /00228502/ [Concomitant]
     Active Substance: VALPROATE SODIUM
     Dosage: UNK
     Dates: start: 202003, end: 202003
  10. DEPRAKINE                          /00228502/ [Concomitant]
     Active Substance: VALPROATE SODIUM
     Dosage: UPTO 1000 MG, QD
     Dates: start: 20200422
  11. TARGINIQ ER [Concomitant]
     Active Substance: NALOXONE HYDROCHLORIDE\OXYCODONE HYDROCHLORIDE
     Dosage: 110MG/5 MG TWICE A DAY
     Dates: start: 20200401, end: 20200403
  12. LEPONEX [Suspect]
     Active Substance: CLOZAPINE
     Indication: SCHIZOPHRENIA
     Dosage: 450 MILLIGRAM, QD
     Dates: start: 2018
  13. LEPONEX [Suspect]
     Active Substance: CLOZAPINE
     Dosage: UNK
     Dates: start: 2018, end: 2019
  14. LEPONEX [Suspect]
     Active Substance: CLOZAPINE
     Dosage: 300 MILLIGRAM, QD
     Dates: start: 2020, end: 202003
  15. LEPONEX [Suspect]
     Active Substance: CLOZAPINE
     Dosage: UPTO 200 MG PER DAY
     Dates: start: 20200409, end: 20200421
  16. ZYPREXA [Concomitant]
     Active Substance: OLANZAPINE
     Dosage: 10 MILLIGRAM, QD
     Dates: start: 20200401, end: 20200427
  17. TARGINIQ ER [Concomitant]
     Active Substance: NALOXONE HYDROCHLORIDE\OXYCODONE HYDROCHLORIDE
     Dosage: 5 MG/2.5 MG TWICE A DAY
     Dates: start: 20200403, end: 20200406
  18. LEPONEX [Suspect]
     Active Substance: CLOZAPINE
     Dosage: HALVED DOSE
     Dates: start: 2019, end: 2020
  19. LEPONEX [Suspect]
     Active Substance: CLOZAPINE
     Dosage: UNK
     Dates: start: 20200403, end: 20200409
  20. LEPONEX [Suspect]
     Active Substance: CLOZAPINE
     Dosage: TO 200 MG PER DAY
     Dates: start: 20200430, end: 20200505
  21. LEPONEX [Suspect]
     Active Substance: CLOZAPINE
     Dosage: UNK
  22. LEPONEX [Suspect]
     Active Substance: CLOZAPINE
     Dosage: UPTO 300 MG PER DAY
     Dates: start: 20200421, end: 20200430
  23. DEPRAKINE                          /00228502/ [Concomitant]
     Active Substance: VALPROATE SODIUM
     Dosage: UPTO 1000 MG PER DAY
     Dates: start: 2019, end: 202003

REACTIONS (10)
  - Neutropenia [Recovered/Resolved]
  - White blood cell count decreased [Recovered/Resolved]
  - Hallucination [Unknown]
  - Antipsychotic drug level increased [Unknown]
  - Neutrophil count abnormal [Unknown]
  - Intentional product misuse [Recovered/Resolved]
  - Appendicitis [Recovered/Resolved]
  - Oropharyngeal pain [Unknown]
  - Hospitalisation [Unknown]
  - Drug ineffective [Unknown]

NARRATIVE: CASE EVENT DATE: 2019
